FAERS Safety Report 7654346-4 (Version None)
Quarter: 2011Q3

REPORT INFORMATION
  Report Type: 
  Country: None (occurrence: None)
  Receive Date: 20110803
  Receipt Date: 20110727
  Transmission Date: 20111222
  Serious: Yes (Hospitalization)
  Sender: FDA-Public Use
  Company Number: US-PFIZER INC-2011172057

PATIENT
  Sex: Female

DRUGS (9)
  1. NORVASC [Concomitant]
     Dosage: UNK
  2. DOXORUBICIN HCL [Suspect]
     Indication: SARCOMA
     Dosage: 130 MG, UNK
     Dates: start: 20110628
  3. COLACE [Concomitant]
     Dosage: UNK
  4. TYLENOL-500 [Concomitant]
     Dosage: UNK
  5. SENNA ALEXANDRINA [Concomitant]
     Dosage: UNK
  6. MAGNESIUM CITRATE [Concomitant]
     Dosage: UNK
  7. OXYCODONE [Concomitant]
     Dosage: UNK
  8. CALCIUM [Concomitant]
     Dosage: UNK
  9. VITAMIN D [Concomitant]
     Dosage: UNK

REACTIONS (1)
  - SKIN INFECTION [None]
